FAERS Safety Report 4896075-6 (Version None)
Quarter: 2005Q4

REPORT INFORMATION
  Report Type: 
  Country: None (occurrence: None)
  Receive Date: 20051220
  Receipt Date: 20050909
  Transmission Date: 20060501
  Serious: Yes (Hospitalization)
  Sender: FDA-Public Use
  Company Number: US147713

PATIENT
  Sex: Male

DRUGS (5)
  1. ENBREL [Suspect]
     Indication: RHEUMATOID ARTHRITIS
     Dosage: 50 MG, 1 IN 1 WEEKS, SC
     Route: 058
     Dates: start: 20030331, end: 20050801
  2. PREDNISONE [Concomitant]
  3. METHOTREXATE [Concomitant]
  4. TRAMADOL HCL [Concomitant]
  5. CALCIUM WITH VITAMIN D [Concomitant]

REACTIONS (1)
  - MYOCARDIAL INFARCTION [None]
